FAERS Safety Report 5082115-0 (Version None)
Quarter: 2006Q3

REPORT INFORMATION
  Report Type: 
  Country: None (occurrence: None)
  Receive Date: 20060815
  Receipt Date: 20060815
  Transmission Date: 20061208
  Serious: Yes (Hospitalization)
  Sender: FDA-Public Use
  Company Number: None

PATIENT
  Age: 89 Year
  Sex: Female
  Weight: 40 kg

DRUGS (1)
  1. METFORMIN  500MG [Suspect]
     Indication: DIABETES MELLITUS
     Dosage: 500MG BID PO
     Route: 048

REACTIONS (5)
  - ACIDOSIS [None]
  - ANION GAP ABNORMAL [None]
  - BLOOD LACTIC ACID INCREASED [None]
  - MUSCULAR WEAKNESS [None]
  - TROPONIN INCREASED [None]
